FAERS Safety Report 8648128 (Version 2)
Quarter: 2013Q1

REPORT INFORMATION
  Report Type: Report from Study
  Country: US (occurrence: US)
  Receive Date: 20120703
  Receipt Date: 20130128
  Transmission Date: 20140127
  Serious: Yes (Hospitalization)
  Sender: FDA-Public Use
  Company Number: PHHO2012US009687

PATIENT
  Age: 54 Year
  Sex: Male
  Weight: 65.6 kg

DRUGS (24)
  1. CETUXIMAB [Suspect]
     Indication: TONGUE CANCER METASTATIC
     Dosage: 482 MG, QW
     Route: 042
     Dates: start: 20110620, end: 20110624
  2. 5-FLUOROURACIL [Suspect]
     Indication: TONGUE CANCER METASTATIC
     Dosage: 950 MG, QD
     Dates: start: 20110619, end: 20110624
  3. BLINDED AFINITOR [Suspect]
     Indication: SQUAMOUS CELL CARCINOMA
     Dosage: CODE NOT BROKEN
  4. BLINDED NO TREATMENT RECEIVED [Suspect]
     Indication: SQUAMOUS CELL CARCINOMA
     Dosage: CODE NOT BROKEN
  5. BLINDED PLACEBO [Suspect]
     Indication: SQUAMOUS CELL CARCINOMA
     Dosage: CODE NOT BROKEN
  6. DECADRON [Suspect]
  7. HYDROXYUREA [Suspect]
     Indication: TONGUE CANCER METASTATIC
     Dosage: 500 MG, BID
     Route: 048
     Dates: start: 20110619, end: 20110624
  8. LIDOCAINE [Concomitant]
  9. MORPHINE [Concomitant]
  10. PERI-COLACE [Concomitant]
  11. MIRALAX [Concomitant]
  12. ORAMORPH [Concomitant]
  13. PRILOSEC [Concomitant]
  14. IBUPROFEN [Concomitant]
  15. FENTANYL [Concomitant]
  16. FLUCONAZOLE [Concomitant]
  17. MUPIROCIN [Concomitant]
  18. MYLANTA [Concomitant]
  19. ESOMEPRAZOLE [Concomitant]
  20. ONDANSETRON [Concomitant]
  21. SENNA-S (DOCUSATE SODIUM/SENNA ALEXANDRINA) [Concomitant]
  22. GUAIFENESIN [Concomitant]
  23. LORAZEPAM [Concomitant]
  24. SILVADENE [Concomitant]

REACTIONS (2)
  - Dehydration [Recovered/Resolved]
  - Renal injury [Recovered/Resolved]
